FAERS Safety Report 22353021 (Version 4)
Quarter: 2023Q2

REPORT INFORMATION
  Report Type: Spontaneous
  Country: ES (occurrence: None)
  Receive Date: 20230523
  Receipt Date: 20230608
  Transmission Date: 20230721
  Serious: Yes (Hospitalization)
  Sender: FDA-Public Use
  Company Number: ES-ROCHE-3352821

PATIENT
  Age: 28 Year
  Sex: Female

DRUGS (2)
  1. RISDIPLAM [Suspect]
     Active Substance: RISDIPLAM
     Indication: Spinal muscular atrophy
     Dosage: 60 MG/80 ML (0.75 MG/ML) POWDER FOR ORAL SOLUTION
     Route: 048
     Dates: start: 20230507
  2. RISDIPLAM [Suspect]
     Active Substance: RISDIPLAM
     Dosage: 3.3ML/DAY
     Route: 048
     Dates: start: 20230516

REACTIONS (2)
  - Metabolic acidosis [Recovered/Resolved]
  - Drug intolerance [Recovered/Resolved]
